FAERS Safety Report 15586807 (Version 1)
Quarter: 2018Q4

REPORT INFORMATION
  Report Type: Report from Study
  Country: GB (occurrence: GB)
  Receive Date: 20181105
  Receipt Date: 20181105
  Transmission Date: 20190205
  Serious: Yes (Hospitalization, Other)
  Sender: FDA-Public Use
  Company Number: GB-MYLANLABS-2018M1082074

PATIENT
  Sex: Female

DRUGS (7)
  1. ALEMTUZUMAB [Suspect]
     Active Substance: ALEMTUZUMAB
     Indication: BONE MARROW CONDITIONING REGIMEN
     Dosage: FROM DAYS 8 TO 4
     Route: 065
  2. CICLOSPORIN [Suspect]
     Active Substance: CYCLOSPORINE
     Indication: STILL^S DISEASE
     Route: 065
  3. FLUDARABINE [Suspect]
     Active Substance: FLUDARABINE PHOSPHATE
     Indication: BONE MARROW CONDITIONING REGIMEN
     Dosage: FROM DAYS 7 TO 3
     Route: 065
  4. ATG                                /00575401/ [Suspect]
     Active Substance: LAPINE T-LYMPHOCYTE IMMUNE GLOBULIN
     Indication: STILL^S DISEASE
     Route: 065
  5. ETOPOSIDE. [Suspect]
     Active Substance: ETOPOSIDE
     Indication: STILL^S DISEASE
     Route: 065
  6. MELPHALAN. [Suspect]
     Active Substance: MELPHALAN
     Indication: BONE MARROW CONDITIONING REGIMEN
     Dosage: ON DAY 3
     Route: 065
  7. ANAKINRA [Suspect]
     Active Substance: ANAKINRA
     Indication: STILL^S DISEASE
     Route: 065

REACTIONS (7)
  - Haemophagocytic lymphohistiocytosis [Unknown]
  - Pseudomonas infection [Unknown]
  - Cardiac failure [Unknown]
  - Pericardial effusion [Unknown]
  - Adenovirus infection [Unknown]
  - Sepsis [Unknown]
  - Left ventricular dysfunction [Unknown]
